FAERS Safety Report 11542508 (Version 1)
Quarter: 2015Q3

REPORT INFORMATION
  Report Type: Spontaneous
  Country: US (occurrence: US)
  Receive Date: 20150903
  Receipt Date: 20150903
  Transmission Date: 20151125
  Serious: No
  Sender: FDA-Public Use
  Company Number: US-ELI_LILLY_AND_COMPANY-US201204009071

PATIENT
  Sex: Male

DRUGS (4)
  1. HUMALOG MIX75/25 [Suspect]
     Active Substance: INSULIN LISPRO
     Dosage: 30 U, EACH EVENING
     Dates: start: 2011
  2. NOVOLIN 30R [Concomitant]
     Active Substance: INSULIN HUMAN
  3. HUMALOG [Suspect]
     Active Substance: INSULIN LISPRO
     Indication: DIABETES MELLITUS
     Dosage: 5 U, UNK
  4. HUMALOG MIX75/25 [Suspect]
     Active Substance: INSULIN LISPRO
     Indication: DIABETES MELLITUS
     Dosage: 45 U, EACH MORNING
     Dates: start: 2011

REACTIONS (2)
  - Injection site pain [Unknown]
  - Blood glucose increased [Unknown]
